FAERS Safety Report 23705572 (Version 1)
Quarter: 2024Q2

REPORT INFORMATION
  Report Type: Spontaneous
  Country: US (occurrence: US)
  Receive Date: 20240404
  Receipt Date: 20240404
  Transmission Date: 20240716
  Serious: No
  Sender: FDA-Public Use
  Company Number: US-SANOFI-01994547

PATIENT
  Age: 62 Year
  Sex: Female

DRUGS (2)
  1. DUPIXENT [Suspect]
     Active Substance: DUPILUMAB
     Indication: Eczema
     Dosage: 2 DF 1X
     Dates: start: 20240322, end: 20240322
  2. DUPIXENT [Suspect]
     Active Substance: DUPILUMAB
     Dosage: 300 MG QOW
     Dates: start: 2024

REACTIONS (6)
  - Skin mass [Not Recovered/Not Resolved]
  - Influenza like illness [Unknown]
  - Decreased appetite [Unknown]
  - Pain in extremity [Unknown]
  - Urticaria [Unknown]
  - Arthralgia [Unknown]

NARRATIVE: CASE EVENT DATE: 20240301
